FAERS Safety Report 23167573 (Version 3)
Quarter: 2023Q4

REPORT INFORMATION
  Report Type: Spontaneous
  Country: US (occurrence: US)
  Receive Date: 20231109
  Receipt Date: 20231124
  Transmission Date: 20240110
  Serious: Yes (Other)
  Sender: FDA-Public Use
  Company Number: US-SA-SAC20231101001413

PATIENT
  Age: 68 Year
  Sex: Male

DRUGS (2)
  1. DUPIXENT [Suspect]
     Active Substance: DUPILUMAB
     Indication: Chronic obstructive pulmonary disease
     Dosage: 300 MG, QOW
     Route: 058
  2. FASENRA [Concomitant]
     Active Substance: BENRALIZUMAB
     Dosage: UNK UNK, 1X

REACTIONS (5)
  - Pneumonia [Not Recovered/Not Resolved]
  - Dyspnoea [Recovered/Resolved]
  - Hyperventilation [Unknown]
  - Feeling cold [Unknown]
  - Dizziness [Unknown]

NARRATIVE: CASE EVENT DATE: 20231010
